FAERS Safety Report 12850275 (Version 2)
Quarter: 2016Q4

REPORT INFORMATION
  Report Type: Spontaneous
  Country: VE (occurrence: VE)
  Receive Date: 20161014
  Receipt Date: 20161027
  Transmission Date: 20170207
  Serious: Yes (Other)
  Sender: FDA-Public Use
  Company Number: PHHY2016VE140180

PATIENT
  Sex: Female

DRUGS (4)
  1. TEGRETOL [Suspect]
     Active Substance: CARBAMAZEPINE
     Dosage: 400 MG (TEGRETOL 200 MG), UNK
     Route: 048
  2. TEGRETOL [Suspect]
     Active Substance: CARBAMAZEPINE
     Indication: SEIZURE
     Dosage: 400 MG, QD
     Route: 048
  3. CARBAMAZEPINE. [Concomitant]
     Active Substance: CARBAMAZEPINE
     Indication: PRODUCT USED FOR UNKNOWN INDICATION
     Dosage: UNK
     Route: 065
  4. TEGRETOL [Suspect]
     Active Substance: CARBAMAZEPINE
     Indication: SEIZURE
     Dosage: 20 CM3, QD
     Route: 048

REACTIONS (12)
  - Depressed mood [Unknown]
  - Musculoskeletal stiffness [Unknown]
  - Movement disorder [Recovered/Resolved]
  - Mood altered [Recovered/Resolved]
  - Seizure [Recovered/Resolved]
  - Crying [Unknown]
  - Emotional disorder [Recovered/Resolved]
  - Intellectual disability [Unknown]
  - Cough [Unknown]
  - Eye movement disorder [Unknown]
  - Impatience [Unknown]
  - Headache [Unknown]
